FAERS Safety Report 6885174-5 (Version None)
Quarter: 2010Q3

REPORT INFORMATION
  Report Type: 
  Country: None (occurrence: None)
  Receive Date: 20100729
  Receipt Date: 20100729
  Transmission Date: 20110219
  Serious: No
  Sender: FDA-Public Use
  Company Number: None

PATIENT
  Sex: Female

DRUGS (2)
  1. TEMODAR [Suspect]
     Indication: BRAIN NEOPLASM MALIGNANT
     Dosage: 100MG DAILY PO
     Route: 048
     Dates: start: 20100531, end: 20100709
  2. TEMODAR [Suspect]
     Dosage: 20MG DAILY PO
     Route: 048

REACTIONS (2)
  - LOSS OF CONSCIOUSNESS [None]
  - THROMBOSIS [None]
